FAERS Safety Report 6213978-0 (Version None)
Quarter: 2009Q2

REPORT INFORMATION
  Report Type: 
  Country: None (occurrence: None)
  Receive Date: 20090601
  Receipt Date: 20090601
  Transmission Date: 20091009
  Serious: Yes (Hospitalization)
  Sender: FDA-Public Use
  Company Number: None

PATIENT
  Age: 84 Year
  Sex: Female
  Weight: 63 kg

DRUGS (8)
  1. WARFARIN SODIUM [Suspect]
     Indication: ATRIAL FIBRILLATION
     Dosage: 6 MG DAILY PO UNKNOWN
     Route: 048
  2. RAMIPRIL [Concomitant]
  3. AMLODIPINE [Concomitant]
  4. HYDRODIURIL [Concomitant]
  5. ASACOL [Concomitant]
  6. NADOLOL [Concomitant]
  7. COLCHICINE [Concomitant]
  8. DETROL [Concomitant]

REACTIONS (6)
  - ANAEMIA [None]
  - HAEMOGLOBIN DECREASED [None]
  - HYPOTENSION [None]
  - INTERNATIONAL NORMALISED RATIO INCREASED [None]
  - RETROPERITONEAL HAEMORRHAGE [None]
  - THERAPEUTIC AGENT TOXICITY [None]
